FAERS Safety Report 7516810-8 (Version None)
Quarter: 2011Q2

REPORT INFORMATION
  Report Type: 
  Country: None (occurrence: None)
  Receive Date: 20110601
  Receipt Date: 20110523
  Transmission Date: 20111010
  Serious: Yes (Hospitalization, Disabling)
  Sender: FDA-Public Use
  Company Number: US-MERCK-1103USA01102

PATIENT
  Age: 64 Year
  Sex: Female

DRUGS (11)
  1. ASCORBIC ACID [Concomitant]
     Route: 065
     Dates: start: 20000101
  2. VITAMIN E [Concomitant]
     Route: 065
     Dates: start: 20000101
  3. LOVASTATIN [Concomitant]
     Indication: BLOOD CHOLESTEROL INCREASED
     Route: 065
     Dates: start: 20050401, end: 20080501
  4. FOSAMAX [Suspect]
     Indication: OSTEOPOROSIS
     Route: 048
     Dates: start: 20051011, end: 20070308
  5. FOSAMAX [Suspect]
     Route: 048
     Dates: start: 20090204, end: 20090301
  6. ECHINACEA (UNSPECIFIED) [Concomitant]
     Route: 065
     Dates: start: 20000101
  7. ACTONEL [Suspect]
     Indication: OSTEOPOROSIS
     Route: 048
     Dates: start: 20030501, end: 20051001
  8. FOSAMAX PLUS D [Suspect]
     Indication: OSTEOPOROSIS
     Route: 048
     Dates: start: 20070308, end: 20090204
  9. OS-CAL + D [Concomitant]
     Route: 065
     Dates: start: 20060101, end: 20070101
  10. SIMVASTATIN [Concomitant]
     Route: 065
     Dates: start: 20080501
  11. ESTROVEN (NEW FORMULA) [Concomitant]
     Route: 065
     Dates: start: 20031101, end: 20061001

REACTIONS (9)
  - CATARACT [None]
  - LOW TURNOVER OSTEOPATHY [None]
  - OSTEOARTHRITIS [None]
  - FALL [None]
  - FEMUR FRACTURE [None]
  - GROIN PAIN [None]
  - GAIT DISTURBANCE [None]
  - HYPOAESTHESIA [None]
  - GASTROOESOPHAGEAL REFLUX DISEASE [None]
